FAERS Safety Report 22242553 (Version 1)
Quarter: 2023Q2

REPORT INFORMATION
  Report Type: Spontaneous
  Country: US (occurrence: None)
  Receive Date: 20230421
  Receipt Date: 20230421
  Transmission Date: 20230722
  Serious: Yes (Disabling, Other)
  Sender: FDA-Public Use
  Company Number: None

PATIENT
  Age: 73 Year
  Sex: Male
  Weight: 77.56 kg

DRUGS (17)
  1. TERBINAFINE [Suspect]
     Active Substance: TERBINAFINE
     Indication: Onychomycosis
     Dosage: FREQUENCY : DAILY;?
     Route: 048
     Dates: start: 20221025
  2. BOTOX [Concomitant]
     Active Substance: ONABOTULINUMTOXINA
  3. CLONAZEPAM [Concomitant]
     Active Substance: CLONAZEPAM
  4. EZETIMIBE [Concomitant]
     Active Substance: EZETIMIBE
  5. VITAMINS [Concomitant]
     Active Substance: VITAMINS
  6. METOPROLOL SUCCINATE [Concomitant]
     Active Substance: METOPROLOL SUCCINATE
  7. FLUTICASONE [Concomitant]
     Active Substance: FLUTICASONE
  8. ATORVASTATIN [Concomitant]
     Active Substance: ATORVASTATIN
  9. ASPIRIN [Concomitant]
     Active Substance: ASPIRIN
  10. HYDROXYZINE [Concomitant]
     Active Substance: HYDROXYZINE HYDROCHLORIDE
  11. PANTOPRAZOLE [Concomitant]
     Active Substance: PANTOPRAZOLE
  12. DOXAZOSIN [Concomitant]
     Active Substance: DOXAZOSIN MESYLATE
  13. FENOFIBRATE [Concomitant]
     Active Substance: FENOFIBRATE
  14. SYNTHROID [Concomitant]
     Active Substance: LEVOTHYROXINE SODIUM
  15. ear drops [Concomitant]
  16. TRIAMCINOLONE [Concomitant]
     Active Substance: TRIAMCINOLONE
  17. CLARITIN [Concomitant]
     Active Substance: LORATADINE

REACTIONS (5)
  - Hypersensitivity [None]
  - Paraesthesia [None]
  - Night sweats [None]
  - Dystonia [None]
  - Blood glucose increased [None]

NARRATIVE: CASE EVENT DATE: 20221025
